FAERS Safety Report 14349663 (Version 2)
Quarter: 2018Q4

REPORT INFORMATION
  Report Type: Spontaneous
  Country: US (occurrence: US)
  Receive Date: 20180104
  Receipt Date: 20181122
  Transmission Date: 20190204
  Serious: Yes (Other)
  Sender: FDA-Public Use
  Company Number: US-ASTRAZENECA-2018SE00230

PATIENT
  Age: 19520 Day
  Sex: Female
  Weight: 76.8 kg

DRUGS (55)
  1. NEXIUM [Suspect]
     Active Substance: ESOMEPRAZOLE MAGNESIUM
     Indication: GASTROOESOPHAGEAL REFLUX DISEASE
     Route: 048
     Dates: start: 20160725
  2. ATORVASTATIN [Concomitant]
     Active Substance: ATORVASTATIN
  3. AMOXICILLIN. [Concomitant]
     Active Substance: AMOXICILLIN
     Dates: start: 20160909
  4. LIORESAL [Concomitant]
     Active Substance: BACLOFEN
     Dates: start: 20160625
  5. CIPRO [Concomitant]
     Active Substance: CIPROFLOXACIN HYDROCHLORIDE
     Dates: start: 20130724, end: 20130823
  6. NEXIUM [Suspect]
     Active Substance: ESOMEPRAZOLE MAGNESIUM
     Indication: GASTROOESOPHAGEAL REFLUX DISEASE
     Route: 048
     Dates: start: 20110616
  7. ZOVIRAX [Concomitant]
     Active Substance: ACYCLOVIR
  8. HYDROCODONE BITARTRATE AND ACETAMINOPHEN [Concomitant]
     Active Substance: ACETAMINOPHEN\HYDROCODONE BITARTRATE
     Dosage: 7.5/325 MG
  9. LEVALBUTEROL HCL [Concomitant]
     Active Substance: LEVALBUTEROL HYDROCHLORIDE
  10. VITAMIN D [Concomitant]
     Active Substance: CHOLECALCIFEROL
     Dosage: 50000UNIT CAPSULE
  11. CYCLOBENZAPRINE HYDROCHLORIDE. [Concomitant]
     Active Substance: CYCLOBENZAPRINE HYDROCHLORIDE
  12. DIPHENHYDRAMINE. [Concomitant]
     Active Substance: DIPHENHYDRAMINE
  13. AVELOX [Concomitant]
     Active Substance: MOXIFLOXACIN HYDROCHLORIDE
     Dates: start: 20120210, end: 20120725
  14. LEXAPRO [Concomitant]
     Active Substance: ESCITALOPRAM OXALATE
     Dates: start: 20110616, end: 20120315
  15. AMITIZA [Concomitant]
     Active Substance: LUBIPROSTONE
     Dosage: 8 MCG
     Dates: start: 20110407, end: 20120725
  16. NEXIUM [Suspect]
     Active Substance: ESOMEPRAZOLE MAGNESIUM
     Indication: GASTROOESOPHAGEAL REFLUX DISEASE
     Route: 048
     Dates: start: 2010, end: 2015
  17. LISINOPRIL. [Concomitant]
     Active Substance: LISINOPRIL
  18. COLACE [Concomitant]
     Active Substance: DOCUSATE SODIUM
     Dates: start: 20160625
  19. PROTONIX [Concomitant]
     Active Substance: PANTOPRAZOLE SODIUM
     Route: 048
     Dates: start: 20160725
  20. DESYREL [Concomitant]
     Active Substance: TRAZODONE HYDROCHLORIDE
     Route: 048
  21. FEXOFENADINE HCL [Concomitant]
     Active Substance: FEXOFENADINE HYDROCHLORIDE
  22. MACROBID [Concomitant]
     Active Substance: NITROFURANTOIN\NITROFURANTOIN MONOHYDRATE
     Dates: start: 20130823, end: 20130923
  23. CELEBREX [Concomitant]
     Active Substance: CELECOXIB
     Dates: start: 20121105, end: 20130828
  24. CHANTIX [Concomitant]
     Active Substance: VARENICLINE TARTRATE
     Dates: start: 20110822, end: 20110922
  25. HYDROXYZINE [Concomitant]
     Active Substance: HYDROXYZINE HYDROCHLORIDE
  26. SYMBICORT [Concomitant]
     Active Substance: BUDESONIDE\FORMOTEROL FUMARATE DIHYDRATE
  27. SENNA-S [Concomitant]
     Active Substance: DOCUSATE SODIUM\SENNOSIDES
     Route: 048
  28. VIMOVO [Concomitant]
     Active Substance: ESOMEPRAZOLE MAGNESIUM\NAPROXEN
     Dosage: 500-20MG
  29. CLARINEX [Concomitant]
     Active Substance: DESLORATADINE
  30. ZETIA [Concomitant]
     Active Substance: EZETIMIBE
     Dates: start: 20120416
  31. ACIPHEX [Concomitant]
     Active Substance: RABEPRAZOLE SODIUM
     Dates: start: 20111129
  32. BACTRIM DS [Concomitant]
     Active Substance: SULFAMETHOXAZOLE\TRIMETHOPRIM
     Dosage: 800-160 MG
     Dates: start: 20130523, end: 20130624
  33. VENTOLIN [Concomitant]
     Active Substance: ALBUTEROL SULFATE
  34. AMBIEN [Concomitant]
     Active Substance: ZOLPIDEM TARTRATE
  35. ONDANSETRON HYDROCHLORIDE. [Concomitant]
     Active Substance: ONDANSETRON HYDROCHLORIDE
  36. PRISTIQ EXTENDED-RELEASE [Concomitant]
     Active Substance: DESVENLAFAXINE SUCCINATE
  37. CARVEDILOL. [Concomitant]
     Active Substance: CARVEDILOL
  38. DUEXIS [Concomitant]
     Active Substance: FAMOTIDINE\IBUPROFEN
     Dosage: 800-26.6 MG
     Dates: start: 20131023
  39. XENICAL [Concomitant]
     Active Substance: ORLISTAT
     Dates: start: 20120210, end: 20120725
  40. PAXIL [Concomitant]
     Active Substance: PAROXETINE HYDROCHLORIDE
     Route: 048
     Dates: start: 20160725
  41. ACYCLOVIR. [Concomitant]
     Active Substance: ACYCLOVIR
  42. OXYCONTIN [Concomitant]
     Active Substance: OXYCODONE HYDROCHLORIDE
     Dates: start: 20160909
  43. REGLAN [Concomitant]
     Active Substance: METOCLOPRAMIDE HYDROCHLORIDE
     Route: 048
  44. SPIRONOLACTONE. [Concomitant]
     Active Substance: SPIRONOLACTONE
  45. OMEGA 3 [Concomitant]
     Active Substance: OMEGA-3 FATTY ACIDS
  46. LORTAB [Concomitant]
     Active Substance: ACETAMINOPHEN\HYDROCODONE BITARTRATE
     Dosage: 10/325
     Route: 048
  47. ELMIRON [Concomitant]
     Active Substance: PENTOSAN POLYSULFATE SODIUM
  48. SEROQUEL XR [Concomitant]
     Active Substance: QUETIAPINE FUMARATE
     Dates: start: 20111104
  49. BUSPAR [Concomitant]
     Active Substance: BUSPIRONE HYDROCHLORIDE
     Dates: start: 20110428, end: 20110428
  50. VELCADE [Concomitant]
     Active Substance: BORTEZOMIB
     Dates: start: 20150304
  51. DEXAMETHASONE. [Concomitant]
     Active Substance: DEXAMETHASONE
     Dates: start: 20150304
  52. HYDROCODONE [Concomitant]
     Active Substance: HYDROCODONE
  53. ASPIRIN. [Concomitant]
     Active Substance: ASPIRIN
  54. VESICARE [Concomitant]
     Active Substance: SOLIFENACIN SUCCINATE
     Route: 048
  55. ONDANSETRON HYDROCHLORIDE. [Concomitant]
     Active Substance: ONDANSETRON HYDROCHLORIDE

REACTIONS (3)
  - Chronic kidney disease [Unknown]
  - Renal failure [Unknown]
  - Acute kidney injury [Unknown]

NARRATIVE: CASE EVENT DATE: 20110307
